FAERS Safety Report 25783606 (Version 2)
Quarter: 2025Q4

REPORT INFORMATION
  Report Type: Spontaneous
  Country: US (occurrence: US)
  Receive Date: 20250910
  Receipt Date: 20251026
  Transmission Date: 20260119
  Serious: No
  Sender: SANOFI AVENTIS
  Company Number: US-SA-2025SA266404

PATIENT
  Age: 16 Year
  Sex: Female

DRUGS (11)
  1. DUPIXENT [Suspect]
     Active Substance: DUPILUMAB
     Indication: Dermatitis atopic
     Dosage: 200 MG, QOW
     Route: 058
     Dates: start: 2021
  2. DUPIXENT [Suspect]
     Active Substance: DUPILUMAB
     Indication: Dermatitis atopic
     Dosage: 200 MG, QOW
     Route: 058
     Dates: start: 2021
  3. NIZORAL [Concomitant]
     Active Substance: KETOCONAZOLE
  4. ATARAX [Concomitant]
     Active Substance: HYDROXYZINE HYDROCHLORIDE
  5. BACTROBAN [Concomitant]
     Active Substance: MUPIROCIN CALCIUM
     Route: 061
  6. PROTOPIC [Concomitant]
     Active Substance: TACROLIMUS
  7. CLOTRIMAZOLE [Concomitant]
     Active Substance: CLOTRIMAZOLE
  8. EPIPEN [Concomitant]
     Active Substance: EPINEPHRINE
     Indication: Anaphylaxis prophylaxis
     Dosage: 0.3 ML PRN
     Route: 030
  9. DERMA-SMOOTHE/FS [Concomitant]
     Active Substance: FLUOCINOLONE ACETONIDE
  10. TOPICORT [Concomitant]
     Active Substance: DESOXIMETASONE
  11. AUVI-Q [Concomitant]
     Active Substance: EPINEPHRINE
     Indication: Anaphylaxis prophylaxis
     Dosage: 0.3 ML, PRN
     Route: 030

REACTIONS (1)
  - No adverse event [Unknown]
